FAERS Safety Report 15961476 (Version 1)
Quarter: 2019Q1

REPORT INFORMATION
  Report Type: Spontaneous
  Country: US (occurrence: US)
  Receive Date: 20190122
  Receipt Date: 20190122
  Transmission Date: 20190417
  Serious: No
  Sender: FDA-Public Use
  Company Number: None

PATIENT
  Age: 79 Year
  Sex: Male

DRUGS (1)
  1. TREMFYA [Suspect]
     Active Substance: GUSELKUMAB
     Indication: PSORIASIS
     Dosage: INJECT 100MGSUBCUTANEOUSLY ON WEEK 0, WEEK 4, THEN EVERY 8 WEEKS AS DIRECTED
     Route: 058
     Dates: start: 201811

REACTIONS (2)
  - Blood urine present [None]
  - Haemorrhage urinary tract [None]
